FAERS Safety Report 9800081 (Version 2)
Quarter: 2014Q1

REPORT INFORMATION
  Report Type: Spontaneous
  Country: US (occurrence: US)
  Receive Date: 20140106
  Receipt Date: 20140106
  Transmission Date: 20141002
  Serious: No
  Sender: FDA-Public Use
  Company Number: US-GILEAD-2010-0030491

PATIENT
  Age: 92 Year
  Sex: Male

DRUGS (12)
  1. LETAIRIS [Suspect]
     Indication: PULMONARY HYPERTENSION
     Route: 048
     Dates: start: 20100525
  2. TADALAFIL [Concomitant]
  3. LASIX [Concomitant]
  4. GLIPIZIDE [Concomitant]
  5. FLOMAX [Concomitant]
  6. FINASTERIDE [Concomitant]
  7. WARFARIN [Concomitant]
  8. ALLOPURINOL [Concomitant]
  9. METOPROLOL ER [Concomitant]
  10. COLACE [Concomitant]
  11. ASA [Concomitant]
  12. METOLAZONE [Concomitant]

REACTIONS (1)
  - Hypotension [Not Recovered/Not Resolved]
